FAERS Safety Report 19813635 (Version 1)
Quarter: 2021Q3

REPORT INFORMATION
  Report Type: Other
  Country: TR (occurrence: TR)
  Receive Date: 20210909
  Receipt Date: 20210909
  Transmission Date: 20211014
  Serious: Yes (Other)
  Sender: FDA-Public Use
  Company Number: TR-OXFORD PHARMACEUTICALS, LLC-2118195

PATIENT
  Sex: Female

DRUGS (2)
  1. TIME RETURN MELATONIN [Concomitant]
     Active Substance: ADENOSINE\NIACINAMIDE
  2. SERTRALINE HYDROCHLORIDE. [Suspect]
     Active Substance: SERTRALINE HYDROCHLORIDE
     Indication: MAJOR DEPRESSION

REACTIONS (2)
  - Carcinoembryonic antigen increased [Recovered/Resolved]
  - Carbohydrate antigen 15-3 increased [Recovered/Resolved]
